FAERS Safety Report 26140121 (Version 1)
Quarter: 2025Q4

REPORT INFORMATION
  Report Type: Spontaneous
  Country: US (occurrence: None)
  Receive Date: 20251210
  Receipt Date: 20251210
  Transmission Date: 20260117
  Serious: Yes (Hospitalization)
  Sender: FDA-CTU
  Company Number: None

PATIENT
  Age: 59 Year
  Sex: Male

DRUGS (1)
  1. DIVALPROEX SODIUM [Suspect]
     Active Substance: DIVALPROEX SODIUM
     Indication: Affective disorder
     Dates: start: 20240821, end: 20250725

REACTIONS (3)
  - Pancreatitis [None]
  - Pseudocyst [None]
  - Urinary retention [None]

NARRATIVE: CASE EVENT DATE: 20250725
